FAERS Safety Report 15983601 (Version 1)
Quarter: 2019Q1

REPORT INFORMATION
  Report Type: Spontaneous
  Country: NL (occurrence: NL)
  Receive Date: 20190220
  Receipt Date: 20190220
  Transmission Date: 20190418
  Serious: Yes (Death, Other)
  Sender: FDA-Public Use
  Company Number: NL-TEVA-2019-NL-1013510

PATIENT
  Age: 88 Year
  Sex: Male

DRUGS (6)
  1. OLANZAPINE 10MG [Concomitant]
     Active Substance: OLANZAPINE
  2. AMOXICILLINE CAPSULE, 500 MG (MILLIGRAM) [Suspect]
     Active Substance: AMOXICILLIN
     Indication: PNEUMONIA
  3. BUMETADINE 2MG [Concomitant]
  4. PIPAMPERON 40MG [Concomitant]
  5. CALCI CHEW D3 [Concomitant]
     Active Substance: CALCIUM CARBONATE\CHOLECALCIFEROL
  6. AMOXICILLINE CAPSULE, 500 MG (MILLIGRAM) [Suspect]
     Active Substance: AMOXICILLIN
     Indication: ERYSIPELAS
     Dosage: 3DD1C
     Dates: start: 20181218, end: 20181228

REACTIONS (2)
  - Nephritic syndrome [Unknown]
  - Vasculitis [Fatal]

NARRATIVE: CASE EVENT DATE: 20181228
